FAERS Safety Report 10405257 (Version 2)
Quarter: 2014Q3

REPORT INFORMATION
  Report Type: Report from Study
  Country: US (occurrence: US)
  Receive Date: 20140825
  Receipt Date: 20140825
  Transmission Date: 20150326
  Serious: Yes (Other)
  Sender: FDA-Public Use
  Company Number: PHHO2010US03891

PATIENT
  Age: 60 Year
  Sex: Female
  Weight: 59.9 kg

DRUGS (4)
  1. CALCIUM [Concomitant]
     Active Substance: CALCIUM
     Dosage: UNK
  2. VITAMIN D [Concomitant]
     Active Substance: CHOLECALCIFEROL
  3. ZOLEDRONATE [Suspect]
     Active Substance: ZOLEDRONIC ACID
     Indication: METASTASES TO BONE
     Dosage: 4 MG, EVERY 4 WEEKS
     Route: 042
     Dates: start: 20091110, end: 20091201
  4. DECADRON [Concomitant]
     Active Substance: DEXAMETHASONE

REACTIONS (11)
  - Dental fistula [Recovered/Resolved]
  - Metastasis [Recovered/Resolved]
  - Tooth infection [Recovered/Resolved]
  - Erythema [Recovered/Resolved]
  - Osteonecrosis of jaw [Recovered/Resolved]
  - Periodontitis [Recovered/Resolved]
  - Toothache [Recovered/Resolved]
  - Gingivitis [Recovered/Resolved]
  - Gingival pain [Recovered/Resolved]
  - Soft tissue disorder [Recovered/Resolved]
  - Stomatitis [Recovered/Resolved]

NARRATIVE: CASE EVENT DATE: 20091125
